FAERS Safety Report 15005152 (Version 1)
Quarter: 2018Q2

REPORT INFORMATION
  Report Type: Spontaneous
  Country: GB (occurrence: GB)
  Receive Date: 20180613
  Receipt Date: 20180613
  Transmission Date: 20180711
  Serious: Yes (Hospitalization)
  Sender: FDA-Public Use
  Company Number: GB-GLAXOSMITHKLINE-GB2018100070

PATIENT
  Age: 75 Year
  Sex: Female
  Weight: 53 kg

DRUGS (7)
  1. PACLITAXEL. [Suspect]
     Active Substance: PACLITAXEL
     Dosage: 132 MG, UNK
     Route: 042
  2. PACLITAXEL. [Suspect]
     Active Substance: PACLITAXEL
     Indication: OVARIAN CANCER
     Dosage: 132 MG, UNK
     Route: 042
  3. SODIUM CHLORIDE. [Suspect]
     Active Substance: SODIUM CHLORIDE
     Indication: MEDICATION DILUTION
     Dosage: 272 ML, UNK
     Route: 042
  4. DEXAMETHASONE. [Suspect]
     Active Substance: DEXAMETHASONE
     Indication: OVARIAN CANCER
     Dosage: 8 MG, UNK
     Route: 042
  5. SODIUM CHLORIDE. [Suspect]
     Active Substance: SODIUM CHLORIDE
     Dosage: 272 ML, UNK
     Route: 042
  6. RANITIDINE. [Suspect]
     Active Substance: RANITIDINE
     Indication: OVARIAN CANCER
     Dosage: 50 MG, UNK
     Route: 042
  7. CHLORPHENIRAMINE. [Suspect]
     Active Substance: CHLORPHENIRAMINE
     Indication: OVARIAN CANCER
     Dosage: 10 MG, UNK
     Route: 042

REACTIONS (4)
  - Lip swelling [Unknown]
  - Swelling [Unknown]
  - Swelling face [Unknown]
  - Mouth swelling [Unknown]

NARRATIVE: CASE EVENT DATE: 201805
